FAERS Safety Report 19295659 (Version 1)
Quarter: 2021Q2

REPORT INFORMATION
  Report Type: Spontaneous
  Country: PL (occurrence: PL)
  Receive Date: 20210524
  Receipt Date: 20210524
  Transmission Date: 20210717
  Serious: Yes (Other)
  Sender: FDA-Public Use
  Company Number: NVSC2021PL110693

PATIENT
  Age: 43 Year
  Sex: Female

DRUGS (1)
  1. OSPAMOX 1000 MG [Suspect]
     Active Substance: AMOXICILLIN
     Indication: PERITONSILLAR ABSCESS
     Dosage: 1 DF
     Route: 048
     Dates: start: 20200504

REACTIONS (2)
  - Pruritus [Recovered/Resolved]
  - Dyspnoea [Recovered/Resolved]

NARRATIVE: CASE EVENT DATE: 20200504
